FAERS Safety Report 15629677 (Version 1)
Quarter: 2018Q4

REPORT INFORMATION
  Report Type: Report from Study
  Country: ES (occurrence: ES)
  Receive Date: 20181117
  Receipt Date: 20181117
  Transmission Date: 20190205
  Serious: Yes (Other)
  Sender: FDA-Public Use
  Company Number: ES-ROCHE-2216216

PATIENT
  Sex: Female

DRUGS (2)
  1. TRASTUZUMAB. [Suspect]
     Active Substance: TRASTUZUMAB
     Indication: HER-2 POSITIVE BREAST CANCER
     Route: 065
  2. PERTUZUMAB. [Suspect]
     Active Substance: PERTUZUMAB
     Indication: HER-2 POSITIVE BREAST CANCER
     Route: 065

REACTIONS (4)
  - Neutropenia [Unknown]
  - Asthenia [Unknown]
  - Febrile neutropenia [Unknown]
  - Diarrhoea [Unknown]
